FAERS Safety Report 17600605 (Version 2)
Quarter: 2020Q2

REPORT INFORMATION
  Report Type: Report from Study
  Country: None (occurrence: CA)
  Receive Date: 20200330
  Receipt Date: 20200416
  Transmission Date: 20200713
  Serious: Yes (Hospitalization)
  Sender: FDA-Public Use
  Company Number: CA-ABBVIE-20K-028-3343233-00

PATIENT
  Age: 51 Year
  Sex: Female

DRUGS (3)
  1. PLAQUENIL [Concomitant]
     Active Substance: HYDROXYCHLOROQUINE SULFATE
     Indication: RHEUMATOID ARTHRITIS
     Route: 048
     Dates: start: 20170829, end: 20200128
  2. METHOTREXATE. [Concomitant]
     Active Substance: METHOTREXATE
     Indication: RHEUMATOID ARTHRITIS
     Route: 058
     Dates: start: 20170329
  3. HUMIRA [Suspect]
     Active Substance: ADALIMUMAB
     Indication: RHEUMATOID ARTHRITIS
     Route: 058
     Dates: start: 20180222, end: 20200109

REACTIONS (10)
  - Pulmonary embolism [Unknown]
  - Palpitations [Unknown]
  - Fatigue [Unknown]
  - Blood bicarbonate increased [Unknown]
  - Calcium ionised decreased [Unknown]
  - Blood pH increased [Unknown]
  - Asthenia [Unknown]
  - Cardiomegaly [Unknown]
  - Troponin increased [Unknown]
  - Pallor [Unknown]

NARRATIVE: CASE EVENT DATE: 201912
